FAERS Safety Report 17770948 (Version 2)
Quarter: 2020Q2

REPORT INFORMATION
  Report Type: Report from Study
  Country: None (occurrence: US)
  Receive Date: 20200512
  Receipt Date: 20200513
  Transmission Date: 20200714
  Serious: Yes (Other)
  Sender: FDA-Public Use
  Company Number: US-ABBVIE-20K-163-3368876-00

PATIENT
  Sex: Female

DRUGS (4)
  1. TOPAMAX [Concomitant]
     Active Substance: TOPIRAMATE
     Indication: PRODUCT USED FOR UNKNOWN INDICATION
  2. RINVOQ [Suspect]
     Active Substance: UPADACITINIB
     Indication: RHEUMATOID ARTHRITIS
     Route: 048
  3. LYRICA [Suspect]
     Active Substance: PREGABALIN
     Indication: FIBROMYALGIA
     Route: 065
  4. BOTOX [Concomitant]
     Active Substance: ONABOTULINUMTOXINA
     Indication: PRODUCT USED FOR UNKNOWN INDICATION
     Route: 050

REACTIONS (13)
  - Joint range of motion decreased [Unknown]
  - Memory impairment [Unknown]
  - Weight increased [Unknown]
  - Drug withdrawal syndrome [Not Recovered/Not Resolved]
  - Dysstasia [Unknown]
  - Asthenia [Not Recovered/Not Resolved]
  - Bone graft [Not Recovered/Not Resolved]
  - Fibromyalgia [Recovering/Resolving]
  - Headache [Not Recovered/Not Resolved]
  - Rheumatoid arthritis [Not Recovered/Not Resolved]
  - Inappropriate schedule of product administration [Unknown]
  - Spinal fusion surgery [Not Recovered/Not Resolved]
  - Bedridden [Recovering/Resolving]
